FAERS Safety Report 9238075 (Version 3)
Quarter: 2014Q1

REPORT INFORMATION
  Report Type: Report from Study
  Country: JP (occurrence: JP)
  Receive Date: 20130418
  Receipt Date: 20140303
  Transmission Date: 20141002
  Serious: Yes (Hospitalization, Other)
  Sender: FDA-Public Use
  Company Number: PHHY2011JP93906

PATIENT
  Age: 42 Year
  Sex: Female
  Weight: 49 kg

DRUGS (28)
  1. LEPONEX / CLOZARIL [Suspect]
     Indication: SCHIZOPHRENIA, PARANOID TYPE
     Dosage: 12.5 MG, QD
     Route: 048
     Dates: start: 20110720, end: 20110720
  2. LEPONEX / CLOZARIL [Suspect]
     Dosage: 25 MG, QD
     Route: 048
     Dates: start: 20110721, end: 20110723
  3. LEPONEX / CLOZARIL [Suspect]
     Dosage: 50 MG, QD
     Route: 048
     Dates: start: 20110724, end: 20110726
  4. LEPONEX / CLOZARIL [Suspect]
     Dosage: 75 MG, QD
     Route: 048
     Dates: start: 20110727, end: 20110728
  5. LEPONEX / CLOZARIL [Suspect]
     Dosage: 100 MG, QD
     Route: 048
     Dates: start: 20110729, end: 20110730
  6. LEPONEX / CLOZARIL [Suspect]
     Dosage: 125 MG, QD
     Route: 048
     Dates: start: 20110731, end: 20110802
  7. LEPONEX / CLOZARIL [Suspect]
     Dosage: 150 MG, QD
     Route: 048
     Dates: start: 20110803, end: 20110805
  8. LEPONEX / CLOZARIL [Suspect]
     Dosage: 175 MG, QD
     Route: 048
     Dates: start: 20110806, end: 20110808
  9. LEPONEX / CLOZARIL [Suspect]
     Dosage: 200 MG, QD
     Route: 048
     Dates: start: 20110809, end: 20110812
  10. LEPONEX / CLOZARIL [Suspect]
     Dosage: 250 MG, QD
     Route: 048
     Dates: start: 20110813, end: 20110816
  11. LEPONEX / CLOZARIL [Suspect]
     Dosage: 300 MG, QD
     Route: 048
     Dates: start: 20110817, end: 20110820
  12. LEPONEX / CLOZARIL [Suspect]
     Dosage: 350 MG, QD
     Route: 048
     Dates: start: 20110821, end: 20110824
  13. LEPONEX / CLOZARIL [Suspect]
     Dosage: 400 MG, QD
     Route: 048
     Dates: start: 20110825, end: 20110828
  14. LEPONEX / CLOZARIL [Suspect]
     Dosage: 450 MG, QD
     Route: 048
     Dates: start: 20110829, end: 20110901
  15. LEPONEX / CLOZARIL [Suspect]
     Dosage: 500 MG, QD
     Route: 048
     Dates: start: 20110902, end: 20110906
  16. LEPONEX / CLOZARIL [Suspect]
     Dosage: 550 MG, QD
     Route: 048
     Dates: start: 20110907, end: 20110909
  17. LEPONEX / CLOZARIL [Suspect]
     Dosage: 600 MG, QD
     Route: 048
     Dates: start: 20110910, end: 20111026
  18. LEPONEX / CLOZARIL [Suspect]
     Dosage: 500 MG, QD
     Dates: start: 20111027, end: 20111102
  19. LEPONEX / CLOZARIL [Suspect]
     Dosage: 400 MG, QD
     Route: 048
     Dates: start: 20111103, end: 20111109
  20. LEPONEX / CLOZARIL [Suspect]
     Dosage: 300 MG, QD
     Route: 048
     Dates: start: 20111110
  21. RISPERDAL [Concomitant]
     Dosage: 12 MG, UNK
     Route: 048
     Dates: start: 20110720
  22. RISPERDAL [Concomitant]
     Dosage: 6 MG, UNK
     Route: 048
  23. RISPERDAL [Concomitant]
     Dosage: 4 MG, UNK
     Route: 048
  24. RISPERDAL [Concomitant]
     Dosage: 2 MG, UNK
     Route: 048
     Dates: end: 20110811
  25. LAMOTRIGINE [Concomitant]
     Indication: SCHIZOPHRENIA, PARANOID TYPE
     Dosage: 12.5 MG, UNK
     Route: 048
     Dates: start: 20111116
  26. LAMOTRIGINE [Concomitant]
     Dosage: 25 MG, UNK
     Route: 048
  27. LAMOTRIGINE [Concomitant]
     Dosage: 50 MG, UNK
     Route: 048
  28. DEPAKENE [Concomitant]
     Indication: SCHIZOPHRENIA, PARANOID TYPE
     Dosage: 400 MG, UNK
     Dates: start: 20120420, end: 20120423

REACTIONS (12)
  - Pyelonephritis [Recovered/Resolved]
  - Urinary tract infection [Recovered/Resolved]
  - Bacteriuria [Unknown]
  - Pyuria [Unknown]
  - Pyrexia [Recovered/Resolved]
  - Loss of consciousness [Unknown]
  - Oxygen saturation decreased [Unknown]
  - Disorientation [Unknown]
  - Amnesia [Unknown]
  - Epilepsy [Recovering/Resolving]
  - Myoclonus [Unknown]
  - Electroencephalogram abnormal [Unknown]
